FAERS Safety Report 9215564 (Version 1)
Quarter: 2013Q2

REPORT INFORMATION
  Report Type: Spontaneous
  Country: US (occurrence: US)
  Receive Date: 20130407
  Receipt Date: 20130407
  Transmission Date: 20140414
  Serious: Yes (Hospitalization)
  Sender: FDA-Public Use
  Company Number: US-BRISTOL-MYERS SQUIBB COMPANY-18726877

PATIENT
  Age: 64 Year
  Sex: Male

DRUGS (17)
  1. ABILIFY [Suspect]
     Indication: SCHIZOPHRENIA
  2. PRAVASTATIN SODIUM [Suspect]
  3. CLOPIDOGREL BISULFATE [Suspect]
  4. METOPROLOL [Suspect]
  5. LAMIVUDINE [Suspect]
  6. EFAVIRENZ [Concomitant]
  7. FERROUS SULFATE [Concomitant]
  8. TIPRANAVIR [Concomitant]
  9. RALTEGRAVIR [Concomitant]
  10. CALCIUM [Concomitant]
  11. MULTIVITAMIN FORTE PHARMAVIT [Concomitant]
  12. PANTOPRAZOLE [Concomitant]
  13. SUCRALFATE [Concomitant]
  14. THIAMINE [Concomitant]
  15. CITALOPRAM [Concomitant]
  16. RITONAVIR [Concomitant]
  17. INSULIN [Concomitant]

REACTIONS (1)
  - Cerebrovascular accident [Unknown]
